FAERS Safety Report 18710432 (Version 1)
Quarter: 2021Q1

REPORT INFORMATION
  Report Type: Spontaneous
  Country: FR (occurrence: FR)
  Receive Date: 20210107
  Receipt Date: 20210107
  Transmission Date: 20210419
  Serious: Yes (Hospitalization)
  Sender: FDA-Public Use
  Company Number: FR-SA-2021SA002988

PATIENT

DRUGS (12)
  1. MACROGOL 4000 [Concomitant]
     Active Substance: POLYETHYLENE GLYCOL 4000
  2. DUPIXENT [Suspect]
     Active Substance: DUPILUMAB
     Dosage: 300 MG, Q15D
     Route: 058
     Dates: start: 20200715, end: 20201127
  3. CANDESARTAN CILEXETIL. [Concomitant]
     Active Substance: CANDESARTAN CILEXETIL
  4. INNOVAIR [Concomitant]
     Active Substance: BECLOMETHASONE DIPROPIONATE\FORMOTEROL
  5. PANTOPRAZOLE [Concomitant]
     Active Substance: PANTOPRAZOLE
  6. VENLAFAXINE [Concomitant]
     Active Substance: VENLAFAXINE HYDROCHLORIDE
  7. DUPIXENT [Suspect]
     Active Substance: DUPILUMAB
     Indication: DERMATITIS ATOPIC
     Dosage: 600 MG, 1X
     Route: 058
  8. VALPROATE SEMISODIQUE [Concomitant]
     Active Substance: DIVALPROEX SODIUM
  9. PARACETAMOL [Concomitant]
     Active Substance: ACETAMINOPHEN
  10. DESLORATADINE. [Concomitant]
     Active Substance: DESLORATADINE
  11. TOCO [Concomitant]
     Active Substance: .ALPHA.-TOCOPHEROL ACETATE, D-
     Dosage: 500 MG
  12. TOVIAZ [Concomitant]
     Active Substance: FESOTERODINE FUMARATE
     Dosage: 8 MG

REACTIONS (1)
  - Psoriasis [Recovering/Resolving]

NARRATIVE: CASE EVENT DATE: 20200902
